FAERS Safety Report 9159841 (Version 1)
Quarter: 2013Q1

REPORT INFORMATION
  Report Type: Spontaneous
  Country: JP (occurrence: JP)
  Receive Date: 20130313
  Receipt Date: 20130313
  Transmission Date: 20140127
  Serious: Yes (Other)
  Sender: FDA-Public Use
  Company Number: JP-BRISTOL-MYERS SQUIBB COMPANY-17458506

PATIENT
  Age: 76 Year
  Sex: Male

DRUGS (1)
  1. METGLUCO [Suspect]
     Indication: BLOOD GLUCOSE DECREASED
     Route: 048
     Dates: start: 20121212, end: 20130128

REACTIONS (1)
  - Renal impairment [Recovered/Resolved]
